FAERS Safety Report 16830469 (Version 1)
Quarter: 2019Q3

REPORT INFORMATION
  Report Type: Spontaneous
  Country: CN (occurrence: CN)
  Receive Date: 20190920
  Receipt Date: 20190920
  Transmission Date: 20191005
  Serious: Yes (Death, Other)
  Sender: FDA-Public Use
  Company Number: CN-UNITED THERAPEUTICS-UNT-2019-015719

PATIENT

DRUGS (4)
  1. REMODULIN [Suspect]
     Active Substance: TREPROSTINIL
     Indication: PORTOPULMONARY HYPERTENSION
     Dosage: UNK
     Route: 058
  2. TADALAFIL. [Concomitant]
     Active Substance: TADALAFIL
     Indication: PORTOPULMONARY HYPERTENSION
     Dosage: UNK
     Route: 065
  3. AMBRISENTAN [Concomitant]
     Active Substance: AMBRISENTAN
     Indication: PORTOPULMONARY HYPERTENSION
     Dosage: UNK
     Route: 065
  4. SILDENAFIL. [Concomitant]
     Active Substance: SILDENAFIL
     Indication: PORTOPULMONARY HYPERTENSION
     Dosage: UNK
     Route: 065

REACTIONS (2)
  - Cardiac failure acute [Fatal]
  - Transplant rejection [Unknown]
